FAERS Safety Report 18991563 (Version 1)
Quarter: 2021Q1

REPORT INFORMATION
  Report Type: Spontaneous
  Country: DE (occurrence: DE)
  Receive Date: 20210310
  Receipt Date: 20210310
  Transmission Date: 20210420
  Serious: Yes (Hospitalization)
  Sender: FDA-Public Use
  Company Number: DE-PFIZER INC-2021207970

PATIENT
  Age: 51 Year
  Sex: Male

DRUGS (12)
  1. TAZOBAC [Suspect]
     Active Substance: PIPERACILLIN SODIUM\TAZOBACTAM SODIUM
     Indication: PYREXIA
     Dosage: UNK
  2. SANDIMMUN [Suspect]
     Active Substance: CYCLOSPORINE
     Indication: IMMUNOSUPPRESSION
     Dosage: UNK
  3. CYTOTECT [Suspect]
     Active Substance: HUMAN CYTOMEGALOVIRUS IMMUNE GLOBULIN
     Dosage: UNK
     Route: 042
  4. CERTICAN [Suspect]
     Active Substance: EVEROLIMUS
     Indication: IMMUNOSUPPRESSION
     Dosage: UNK
  5. CYTOTECT [Suspect]
     Active Substance: HUMAN CYTOMEGALOVIRUS IMMUNE GLOBULIN
     Indication: CYTOMEGALOVIRUS INFECTION
     Dosage: UNK
  6. PREDNISOLONE. [Suspect]
     Active Substance: PREDNISOLONE
     Indication: IMMUNOSUPPRESSION
     Dosage: UNK
  7. VALCYTE [Suspect]
     Active Substance: VALGANCICLOVIR HYDROCHLORIDE
     Dosage: UNK
     Route: 048
  8. MYFORTIC [Suspect]
     Active Substance: MYCOPHENOLATE SODIUM
     Indication: IMMUNOSUPPRESSION
     Dosage: 1440 MG, 1X/DAY
  9. CYTOTECT [Suspect]
     Active Substance: HUMAN CYTOMEGALOVIRUS IMMUNE GLOBULIN
     Dosage: UNK
     Route: 042
  10. VALCYTE [Suspect]
     Active Substance: VALGANCICLOVIR HYDROCHLORIDE
     Indication: PROPHYLAXIS
     Dosage: UNK
     Route: 048
  11. CYMEVEN [GANCICLOVIR] [Suspect]
     Active Substance: GANCICLOVIR
     Indication: CYTOMEGALOVIRUS INFECTION
     Dosage: UNK
     Route: 042
  12. PROGRAF [Suspect]
     Active Substance: TACROLIMUS
     Indication: IMMUNOSUPPRESSION
     Dosage: UNK

REACTIONS (4)
  - Pyrexia [Unknown]
  - Drug ineffective [Unknown]
  - Drug resistance [Unknown]
  - Diarrhoea [Recovered/Resolved]
